FAERS Safety Report 4291877-1 (Version None)
Quarter: 2004Q1

REPORT INFORMATION
  Report Type: 
  Country: None (occurrence: None)
  Receive Date: 20040211
  Receipt Date: 20030820
  Transmission Date: 20041129
  Serious: Yes (Other)
  Sender: FDA-Public Use
  Company Number: US-GLAXOSMITHKLINE-A0422743A

PATIENT
  Age: 31 Year
  Weight: 52.7 kg

DRUGS (1)
  1. IMITREX [Suspect]
     Indication: MIGRAINE
     Dosage: 6MG SINGLE DOSE
     Route: 042
     Dates: start: 20030821, end: 20030821

REACTIONS (1)
  - MEDICATION ERROR [None]
